FAERS Safety Report 15013331 (Version 1)
Quarter: 2018Q2

REPORT INFORMATION
  Report Type: Report from Study
  Country: US (occurrence: US)
  Receive Date: 20180614
  Receipt Date: 20180614
  Transmission Date: 20180711
  Serious: Yes (Death)
  Sender: FDA-Public Use
  Company Number: US-ACTELION-A-US2018-173090

PATIENT
  Age: 59 Year
  Sex: Female

DRUGS (11)
  1. ADEMPAS [Concomitant]
     Active Substance: RIOCIGUAT
  2. ATORVASTATIN [Concomitant]
     Active Substance: ATORVASTATIN
  3. METOPROLOL SUCCINATE. [Concomitant]
     Active Substance: METOPROLOL SUCCINATE
  4. TORSEMIDE. [Concomitant]
     Active Substance: TORSEMIDE
  5. UPTRAVI [Suspect]
     Active Substance: SELEXIPAG
     Indication: PULMONARY ARTERIAL HYPERTENSION
     Dosage: 400 MCG, BID
     Route: 048
     Dates: end: 20180601
  6. ZAROXOLYN [Concomitant]
     Active Substance: METOLAZONE
  7. NIACIN. [Concomitant]
     Active Substance: NIACIN
  8. OPSUMIT [Suspect]
     Active Substance: MACITENTAN
     Indication: PULMONARY ARTERIAL HYPERTENSION
     Route: 048
  9. GABAPENTIN. [Concomitant]
     Active Substance: GABAPENTIN
  10. UPTRAVI [Suspect]
     Active Substance: SELEXIPAG
     Dosage: 200 MCG, BID
     Route: 048
     Dates: start: 20180503
  11. ALDACTONE [Concomitant]
     Active Substance: SPIRONOLACTONE

REACTIONS (3)
  - Death [Fatal]
  - Oxygen consumption increased [Unknown]
  - Dyspnoea [Unknown]

NARRATIVE: CASE EVENT DATE: 20180604
